FAERS Safety Report 6957875-1 (Version None)
Quarter: 2010Q3

REPORT INFORMATION
  Report Type: 
  Country: None (occurrence: None)
  Receive Date: 20100830
  Receipt Date: 20100830
  Transmission Date: 20110219
  Serious: Yes (Life-Threatening, Hospitalization)
  Sender: FDA-Public Use
  Company Number: None

PATIENT
  Age: 24 Year
  Sex: Female
  Weight: 52.1637 kg

DRUGS (1)
  1. NUVARING [Suspect]
     Indication: CONTRACEPTION
     Dosage: 1 USE ONCE MONTHLY INTRA-UTERI NE
     Route: 015
     Dates: start: 20100817, end: 20100825

REACTIONS (5)
  - CEREBRAL THROMBOSIS [None]
  - FATIGUE [None]
  - MIGRAINE [None]
  - PAIN [None]
  - PHOTOPHOBIA [None]
